FAERS Safety Report 20724832 (Version 1)
Quarter: 2022Q2

REPORT INFORMATION
  Report Type: Spontaneous
  Country: US (occurrence: None)
  Receive Date: 20220418
  Receipt Date: 20220418
  Transmission Date: 20220721
  Serious: Yes (Congenital Anomaly, Other)
  Sender: FDA-Public Use
  Company Number: None

PATIENT
  Age: 0 Year
  Sex: Male
  Weight: 3.9 kg

DRUGS (1)
  1. QUETIAPINE [Suspect]
     Active Substance: QUETIAPINE

REACTIONS (4)
  - Penile torsion [None]
  - Chordee [None]
  - Penoscrotal fusion [None]
  - Foetal exposure during pregnancy [None]

NARRATIVE: CASE EVENT DATE: 20180520
